FAERS Safety Report 9062547 (Version 5)
Quarter: 2013Q3

REPORT INFORMATION
  Report Type: Report from Study
  Country: US (occurrence: US)
  Receive Date: 20130213
  Receipt Date: 20130905
  Transmission Date: 20140515
  Serious: Yes (Hospitalization, Other)
  Sender: FDA-Public Use
  Company Number: US-US-EMD SERONO, INC.-7192709

PATIENT
  Age: 41 Year
  Sex: Male
  Weight: 110 kg

DRUGS (3)
  1. REBIF [Suspect]
     Indication: MULTIPLE SCLEROSIS
     Route: 058
     Dates: start: 20091012, end: 20120225
  2. REBIF [Suspect]
     Route: 058
     Dates: start: 20120225, end: 201301
  3. REBIF [Suspect]

REACTIONS (11)
  - Cerebrovascular accident [Unknown]
  - Optic neuritis [Unknown]
  - Brain oedema [Unknown]
  - Central nervous system lesion [Unknown]
  - Fall [Not Recovered/Not Resolved]
  - Memory impairment [Not Recovered/Not Resolved]
  - Balance disorder [Not Recovered/Not Resolved]
  - Nystagmus [Not Recovered/Not Resolved]
  - Local swelling [Unknown]
  - Diarrhoea [Not Recovered/Not Resolved]
  - Urinary incontinence [Unknown]
